FAERS Safety Report 8861204 (Version 1)
Quarter: 2012Q4

REPORT INFORMATION
  Report Type: Spontaneous
  Country: US (occurrence: None)
  Receive Date: 20121025
  Receipt Date: 20121025
  Transmission Date: 20130627
  Serious: Yes (Other)
  Sender: FDA-Public Use
  Company Number: None

PATIENT
  Sex: Female

DRUGS (2)
  1. ACTEMRA [Suspect]
     Indication: RA
     Dosage: Q4wks Infusion
     Dates: start: 20120713
  2. ACTEMRA [Suspect]
     Indication: RA
     Dates: start: 20121011

REACTIONS (2)
  - Pruritus [None]
  - Pruritus [None]
